FAERS Safety Report 4322562-5 (Version None)
Quarter: 2004Q1

REPORT INFORMATION
  Report Type: 
  Country: None (occurrence: None)
  Receive Date: 20040322
  Receipt Date: 20040322
  Transmission Date: 20041129
  Serious: Yes (Other)
  Sender: FDA-Public Use
  Company Number: None

PATIENT
  Age: 56 Year
  Sex: Male
  Weight: 93.4 kg

DRUGS (2)
  1. METFORMIN HCL [Suspect]
  2. LISINOPRIL [Concomitant]

REACTIONS (1)
  - DIARRHOEA [None]
